FAERS Safety Report 17558546 (Version 2)
Quarter: 2020Q2

REPORT INFORMATION
  Report Type: Spontaneous
  Country: US (occurrence: US)
  Receive Date: 20200319
  Receipt Date: 20200630
  Transmission Date: 20200713
  Serious: Yes (Other)
  Sender: FDA-Public Use
  Company Number: US-DRREDDYS-USA/USA/20/0120810

PATIENT
  Age: 64 Year
  Sex: Female

DRUGS (3)
  1. CISPLATIN. [Concomitant]
     Active Substance: CISPLATIN
     Indication: BREAST ANGIOSARCOMA
     Dosage: INFUSED WEEKLY FOR THREE WEEKS ON DAYS 2, 9 AND 16
     Route: 042
  2. DOXORUBICIN HYDROCHLORIDE LIPOSOME INJECTION 20 MG/10 ML (2 MG/ML) AND [Suspect]
     Active Substance: DOXORUBICIN HYDROCHLORIDE
     Indication: BREAST ANGIOSARCOMA
     Dosage: GIVEN OVER 18 H WEEKLY FOR THREE WEEKS ON DAYS 1, 8, AND 15
     Route: 042
  3. PACLITAXEL. [Concomitant]
     Active Substance: PACLITAXEL
     Indication: BREAST ANGIOSARCOMA
     Dosage: INFUSED WEEKLY FOR THREE WEEKS ON DAYS 2, 9 AND 16
     Route: 042

REACTIONS (4)
  - Myalgia [Unknown]
  - Nausea [Unknown]
  - Neutropenia [Unknown]
  - Anaemia [Unknown]
